FAERS Safety Report 17259159 (Version 1)
Quarter: 2020Q1

REPORT INFORMATION
  Report Type: Spontaneous
  Country: FR (occurrence: FR)
  Receive Date: 20200110
  Receipt Date: 20200110
  Transmission Date: 20200409
  Serious: Yes (Other)
  Sender: FDA-Public Use
  Company Number: FR-MYLANLABS-2020M1003125

PATIENT
  Age: 33 Year
  Sex: Male
  Weight: 60 kg

DRUGS (2)
  1. RISPERIDONE. [Suspect]
     Active Substance: RISPERIDONE
     Indication: MENTAL DISORDER
     Dosage: 2 MILLIGRAM, QD
     Route: 048
     Dates: start: 20190909, end: 20190916
  2. CARBAMAZEPINE. [Suspect]
     Active Substance: CARBAMAZEPINE
     Indication: MENTAL DISORDER
     Dosage: 400 MILLIGRAM, QD
     Route: 048
     Dates: start: 20190909, end: 20190916

REACTIONS (1)
  - Hepatocellular injury [Recovering/Resolving]

NARRATIVE: CASE EVENT DATE: 20190912
